FAERS Safety Report 17565558 (Version 8)
Quarter: 2021Q1

REPORT INFORMATION
  Report Type: Spontaneous
  Country: US (occurrence: US)
  Receive Date: 20200320
  Receipt Date: 20210317
  Transmission Date: 20210419
  Serious: Yes (Other)
  Sender: FDA-Public Use
  Company Number: US-PFIZER INC-2020119050

PATIENT
  Age: 53 Year
  Sex: Male
  Weight: 77.11 kg

DRUGS (2)
  1. LYRICA [Suspect]
     Active Substance: PREGABALIN
     Indication: NERVE INJURY
  2. LYRICA [Suspect]
     Active Substance: PREGABALIN
     Indication: NEURALGIA
     Dosage: 75 MG, 3X/DAY
     Route: 048
     Dates: start: 2016

REACTIONS (8)
  - Movement disorder [Unknown]
  - Dyspnoea [Recovered/Resolved]
  - Pain [Unknown]
  - Cough [Recovered/Resolved]
  - Suicidal ideation [Unknown]
  - Loss of personal independence in daily activities [Unknown]
  - Feeling abnormal [Recovered/Resolved]
  - Insomnia [Unknown]

NARRATIVE: CASE EVENT DATE: 20200316
